FAERS Safety Report 23624551 (Version 1)
Quarter: 2024Q1

REPORT INFORMATION
  Report Type: Spontaneous
  Country: US (occurrence: US)
  Receive Date: 20240313
  Receipt Date: 20240313
  Transmission Date: 20240410
  Serious: Yes (Hospitalization)
  Sender: FDA-Public Use
  Company Number: US-ABBVIE-5671314

PATIENT
  Age: 37 Year
  Sex: Female
  Weight: 79 kg

DRUGS (9)
  1. BOTOX [Suspect]
     Active Substance: ONABOTULINUMTOXINA
     Indication: Migraine prophylaxis
     Dosage: TIME INTERVAL: AS NECESSARY
     Route: 030
     Dates: start: 2019, end: 2019
  2. BOTOX [Suspect]
     Active Substance: ONABOTULINUMTOXINA
     Indication: Migraine prophylaxis
     Dosage: TIME INTERVAL: AS NECESSARY
     Route: 030
     Dates: start: 20220526, end: 20220526
  3. TIZANIDINE [Suspect]
     Active Substance: TIZANIDINE
     Indication: Migraine
     Dosage: TIME INTERVAL: AS NECESSARY
     Route: 048
     Dates: start: 20220125, end: 20220725
  4. AJOVY [Suspect]
     Active Substance: FREMANEZUMAB-VFRM
     Indication: Migraine prophylaxis
     Dosage: ROUTE - AUTO INJECTOR
     Route: 065
     Dates: start: 20220125, end: 20220725
  5. PHENERGAN [Concomitant]
     Active Substance: PROMETHAZINE HYDROCHLORIDE
     Indication: Nausea
     Dosage: TIME INTERVAL: AS NECESSARY
     Route: 048
     Dates: start: 20220825
  6. BUSPAR [Concomitant]
     Active Substance: BUSPIRONE HYDROCHLORIDE
     Indication: Anxiety
     Route: 048
     Dates: start: 20220523, end: 20220725
  7. PRO FE [Concomitant]
     Indication: Blood iron decreased
     Route: 048
     Dates: start: 20221212
  8. ZOLOFT [Concomitant]
     Active Substance: SERTRALINE HYDROCHLORIDE
     Indication: Depression
     Route: 048
     Dates: start: 202110
  9. NARATRIPTAN [Suspect]
     Active Substance: NARATRIPTAN HYDROCHLORIDE
     Indication: Migraine
     Dosage: TIME INTERVAL: AS NECESSARY
     Route: 048
     Dates: start: 20220125, end: 20220725

REACTIONS (5)
  - Preterm premature rupture of membranes [Recovered/Resolved]
  - Migraine [Recovering/Resolving]
  - Maternal exposure during pregnancy [Unknown]
  - Premature baby [Unknown]
  - Blood iron decreased [Recovering/Resolving]

NARRATIVE: CASE EVENT DATE: 20221212
